FAERS Safety Report 20167515 (Version 2)
Quarter: 2022Q1

REPORT INFORMATION
  Report Type: Spontaneous
  Country: US (occurrence: US)
  Receive Date: 20211209
  Receipt Date: 20220105
  Transmission Date: 20220423
  Serious: Yes (Hospitalization, Other)
  Sender: FDA-Public Use
  Company Number: US-MLMSERVICE-20211125-3236323-1

PATIENT
  Age: 49 Year
  Sex: Female

DRUGS (1)
  1. DOXIL [Suspect]
     Active Substance: DOXORUBICIN HYDROCHLORIDE
     Indication: Inflammatory carcinoma of the breast
     Dosage: ONE DOSE, TWO WEEKS PRIOR TO PRESENTATION
     Route: 065

REACTIONS (5)
  - Granulomatous liver disease [Recovering/Resolving]
  - Acute hepatic failure [Recovering/Resolving]
  - Drug-induced liver injury [Recovering/Resolving]
  - Hepatotoxicity [Recovering/Resolving]
  - Encephalopathy [Recovered/Resolved]
